FAERS Safety Report 7497810-3 (Version None)
Quarter: 2011Q2

REPORT INFORMATION
  Report Type: 
  Country: None (occurrence: None)
  Receive Date: 20110524
  Receipt Date: 20110421
  Transmission Date: 20111010
  Serious: Yes (Other)
  Sender: FDA-Public Use
  Company Number: US-BAYER-201025649NA

PATIENT
  Sex: Female
  Weight: 58.957 kg

DRUGS (14)
  1. YAZ [Suspect]
     Dosage: UNK
     Dates: start: 20070129, end: 20090721
  2. YASMIN [Suspect]
     Indication: PREMENSTRUAL SYNDROME
     Dosage: UNK
     Route: 048
     Dates: start: 20070129, end: 20090721
  3. YAZ [Suspect]
     Indication: PREMENSTRUAL SYNDROME
     Dosage: UNK
     Route: 048
     Dates: start: 20070129, end: 20090721
  4. PREVACID [Concomitant]
  5. ZOLPIDEM [Concomitant]
     Dosage: 5 MG, UNK
  6. BIAXIN [Concomitant]
     Dosage: 600 MG, UNK
  7. GABAPENTIN [Concomitant]
     Dosage: 100 UNK, UNK
  8. ATIVAN [Concomitant]
  9. YASMIN [Suspect]
     Dosage: UNK
     Dates: start: 20070129, end: 20090721
  10. ALIGN NOS [Concomitant]
  11. IMODIUM [Concomitant]
  12. PREDNISONE [Concomitant]
     Dosage: 20 MG, UNK
  13. AZITHROMYCIN [Concomitant]
     Dosage: 250 MG, UNK
  14. LAMICTAL [Concomitant]
     Dosage: 100 MG, UNK

REACTIONS (4)
  - GALLBLADDER DISORDER [None]
  - DEPRESSION [None]
  - CHOLECYSTITIS CHRONIC [None]
  - ANXIETY [None]
